FAERS Safety Report 5498510-1 (Version None)
Quarter: 2007Q4

REPORT INFORMATION
  Report Type: 
  Country: None (occurrence: None)
  Receive Date: 20071025
  Receipt Date: 20071025
  Transmission Date: 20080405
  Serious: Yes (Other)
  Sender: FDA-Public Use
  Company Number: None

PATIENT
  Age: 51 Year
  Sex: Male
  Weight: 81.6475 kg

DRUGS (1)
  1. LEVAQUIN [Suspect]
     Indication: PYREXIA
     Dosage: 500MG 1/DAY PO
     Route: 048
     Dates: start: 20070928, end: 20070930

REACTIONS (3)
  - DIARRHOEA [None]
  - OCCULT BLOOD POSITIVE [None]
  - STOMACH DISCOMFORT [None]
